FAERS Safety Report 15604197 (Version 3)
Quarter: 2019Q3

REPORT INFORMATION
  Report Type: Spontaneous
  Country: US (occurrence: US)
  Receive Date: 20181110
  Receipt Date: 20190920
  Transmission Date: 20191004
  Serious: Yes (Other)
  Sender: FDA-Public Use
  Company Number: US-HORIZON-VIM-0893-2018

PATIENT
  Sex: Female

DRUGS (14)
  1. NEXIUM [Suspect]
     Active Substance: ESOMEPRAZOLE MAGNESIUM
     Dosage: UNK, AS DIRECTED
     Route: 048
     Dates: start: 1989, end: 2017
  2. PRILOSEC OTC [Suspect]
     Active Substance: OMEPRAZOLE MAGNESIUM
     Indication: HELICOBACTER INFECTION
     Dosage: UNK, AS DIRECTED
     Route: 048
     Dates: start: 1989, end: 2017
  3. PRILOSEC [Suspect]
     Active Substance: OMEPRAZOLE MAGNESIUM
     Indication: HELICOBACTER INFECTION
     Dosage: UNK, AS DIRECTED
     Route: 048
     Dates: start: 1989, end: 2017
  4. PRILOSEC OTC [Suspect]
     Active Substance: OMEPRAZOLE MAGNESIUM
     Indication: HELICOBACTER INFECTION
     Dosage: 20MG ONCE A DAY
     Route: 048
  5. PRILOSEC [Suspect]
     Active Substance: OMEPRAZOLE MAGNESIUM
     Indication: HELICOBACTER INFECTION
     Dosage: 40MG ONCE A DAY
     Route: 048
  6. PREVACID [Suspect]
     Active Substance: LANSOPRAZOLE
     Indication: HELICOBACTER INFECTION
     Dosage: 40MG ONCE A DAY
     Route: 065
  7. ACIPHEX [Suspect]
     Active Substance: RABEPRAZOLE SODIUM
     Indication: PRODUCT USED FOR UNKNOWN INDICATION
     Dosage: UNK, AS DIRECTED
     Route: 048
     Dates: start: 1989, end: 2017
  8. VIMOVO [Suspect]
     Active Substance: ESOMEPRAZOLE MAGNESIUM\NAPROXEN
     Indication: PRODUCT USED FOR UNKNOWN INDICATION
     Dosage: UNK, AS DIRECTED
     Route: 048
     Dates: start: 1989, end: 2017
  9. NEXIUM 24HR [Suspect]
     Active Substance: ESOMEPRAZOLE MAGNESIUM
     Dosage: UNK, AS DIRECTED
     Route: 048
     Dates: start: 1989, end: 2017
  10. DEXILANT [Suspect]
     Active Substance: DEXLANSOPRAZOLE
     Indication: PRODUCT USED FOR UNKNOWN INDICATION
     Dosage: UNK, AS DIRECTED
     Route: 048
     Dates: start: 1989, end: 2017
  11. PREVACID [Suspect]
     Active Substance: LANSOPRAZOLE
     Indication: HELICOBACTER INFECTION
     Dosage: UNK, AS DIRECTED
     Route: 048
     Dates: start: 1989, end: 2017
  12. PROTONIX [Suspect]
     Active Substance: PANTOPRAZOLE SODIUM
     Indication: PRODUCT USED FOR UNKNOWN INDICATION
     Dosage: UNK, AS DIRECTED
     Route: 048
     Dates: start: 1989, end: 2017
  13. PREVACID [Suspect]
     Active Substance: LANSOPRAZOLE
     Indication: HELICOBACTER INFECTION
     Route: 065
  14. PREVACID [Suspect]
     Active Substance: LANSOPRAZOLE
     Dosage: UNK, AS DIRECTED
     Route: 065
     Dates: start: 1989, end: 2017

REACTIONS (2)
  - Chronic kidney disease [Not Recovered/Not Resolved]
  - Renal injury [Unknown]
